FAERS Safety Report 13457027 (Version 3)
Quarter: 2017Q3

REPORT INFORMATION
  Report Type: Report from Study
  Country: US (occurrence: US)
  Receive Date: 20170419
  Receipt Date: 20170727
  Transmission Date: 20171127
  Serious: Yes (Hospitalization)
  Sender: FDA-Public Use
  Company Number: US-PFIZER INC-2017166909

PATIENT
  Age: 22 Year
  Sex: Female

DRUGS (2)
  1. MIFEGYNE [Suspect]
     Active Substance: MIFEPRISTONE
     Indication: ABORTION INDUCED
     Dosage: 600 MG, TOTAL
     Route: 048
     Dates: start: 19950125, end: 19950125
  2. MISOPROSTOL. [Suspect]
     Active Substance: MISOPROSTOL
     Indication: ABORTION INDUCED
     Dosage: 400 UG, TOTAL
     Route: 048
     Dates: start: 19950127, end: 19950127

REACTIONS (4)
  - Drug ineffective [Recovered/Resolved]
  - Metrorrhagia [Recovered/Resolved]
  - Endometritis [Recovered/Resolved]
  - Haemorrhagic anaemia [Recovered/Resolved]

NARRATIVE: CASE EVENT DATE: 199501
